FAERS Safety Report 18731239 (Version 2)
Quarter: 2021Q1

REPORT INFORMATION
  Report Type: Report from Study
  Country: IN (occurrence: IN)
  Receive Date: 20210112
  Receipt Date: 20210128
  Transmission Date: 20210419
  Serious: Yes (Hospitalization)
  Sender: FDA-Public Use
  Company Number: IN-PFIZER INC-2021005027

PATIENT
  Age: 67 Year
  Sex: Male
  Weight: 60.75 kg

DRUGS (3)
  1. VITCOFOL [CYANOCOBALAMIN;FERROUS FUMARATE;FOLIC ACID;PYRIDOXINE HYDROC [Concomitant]
     Indication: ANAEMIA
     Dosage: 1 TABLESPOON, 2X/DAY (BD)
     Route: 048
     Dates: start: 20201222
  2. LORLATINIB [Suspect]
     Active Substance: LORLATINIB
     Indication: NON-SMALL CELL LUNG CANCER METASTATIC
     Dosage: 100 MG (4 TABLETS), DAILY
     Route: 048
     Dates: start: 20201107, end: 20201214
  3. SUPRADYN [ASCORBIC ACID;BIOTIN;CALCIUM;CALCIUM PANTOTHENATE;CALCIUM PH [Concomitant]
     Indication: VITAMIN SUPPLEMENTATION
     Dosage: 1 TAB, 1X/DAY (OD)
     Route: 048
     Dates: start: 20201222

REACTIONS (1)
  - Gastrointestinal haemorrhage [Recovered/Resolved]

NARRATIVE: CASE EVENT DATE: 20210102
